FAERS Safety Report 9428001 (Version 1)
Quarter: 2013Q3

REPORT INFORMATION
  Report Type: Report from Study
  Country: US (occurrence: US)
  Receive Date: 20130730
  Receipt Date: 20130730
  Transmission Date: 20140515
  Serious: No
  Sender: FDA-Public Use
  Company Number: US-ABBOTT-12P-163-0991059-00

PATIENT
  Age: 46 Year
  Sex: Male
  Weight: 93.07 kg

DRUGS (2)
  1. NIASPAN (COATED) [Suspect]
     Indication: BLOOD TRIGLYCERIDES INCREASED
     Dates: start: 2010, end: 201210
  2. SIMCOR 500/20 [Suspect]
     Indication: LOW DENSITY LIPOPROTEIN INCREASED
     Dosage: 500/20MG
     Dates: start: 201210

REACTIONS (2)
  - Flushing [Recovered/Resolved]
  - Headache [Recovered/Resolved]
